FAERS Safety Report 13143457 (Version 20)
Quarter: 2018Q4

REPORT INFORMATION
  Report Type: Report from Study
  Country: AU (occurrence: AU)
  Receive Date: 20170123
  Receipt Date: 20181226
  Transmission Date: 20190204
  Serious: Yes (Other)
  Sender: FDA-Public Use
  Company Number: PHHY2017AU007304

PATIENT
  Sex: Female
  Weight: 60 kg

DRUGS (7)
  1. AMANTADINE. [Concomitant]
     Active Substance: AMANTADINE HYDROCHLORIDE
     Indication: PRODUCT USED FOR UNKNOWN INDICATION
     Dosage: 100 MG MANE
     Route: 065
  2. TEGRETOL [Suspect]
     Active Substance: CARBAMAZEPINE
     Dosage: UNK
     Route: 065
  3. VITAMIN D [Concomitant]
     Active Substance: CHOLECALCIFEROL
     Indication: PRODUCT USED FOR UNKNOWN INDICATION
     Dosage: UNK
     Route: 065
  4. GILENYA [Suspect]
     Active Substance: FINGOLIMOD HYDROCHLORIDE
     Dosage: UNK
     Route: 048
     Dates: start: 20170613
  5. TEGRETOL [Suspect]
     Active Substance: CARBAMAZEPINE
     Indication: LHERMITTE^S SIGN
     Dosage: 200 M MANE, BID
     Route: 065
     Dates: start: 201401
  6. DITROPAN [Concomitant]
     Active Substance: OXYBUTYNIN CHLORIDE
     Indication: PRODUCT USED FOR UNKNOWN INDICATION
     Dosage: 2.5 MG, QD (NOCTE)
     Route: 065
     Dates: start: 201404
  7. GILENYA [Suspect]
     Active Substance: FINGOLIMOD HYDROCHLORIDE
     Indication: RELAPSING-REMITTING MULTIPLE SCLEROSIS
     Dosage: UNK
     Route: 048
     Dates: start: 201402

REACTIONS (30)
  - Poor quality sleep [Recovering/Resolving]
  - Depression [Not Recovered/Not Resolved]
  - Fall [Recovered/Resolved]
  - Muscular weakness [Recovered/Resolved]
  - Fatigue [Recovered/Resolved]
  - Syncope [Unknown]
  - Liver function test abnormal [Recovering/Resolving]
  - Memory impairment [Unknown]
  - Balance disorder [Not Recovered/Not Resolved]
  - Vertigo [Recovering/Resolving]
  - Restlessness [Not Recovered/Not Resolved]
  - Sensitivity to weather change [Not Recovered/Not Resolved]
  - Fear [Unknown]
  - Sensory loss [Unknown]
  - Pain in extremity [Recovering/Resolving]
  - Nervousness [Not Recovered/Not Resolved]
  - Migraine [Recovered/Resolved]
  - Deafness unilateral [Unknown]
  - Boredom [Not Recovered/Not Resolved]
  - Viral infection [Recovered/Resolved]
  - Fatigue [Recovering/Resolving]
  - Pain [Recovering/Resolving]
  - Feeling hot [Recovering/Resolving]
  - Weight increased [Recovering/Resolving]
  - Insomnia [Unknown]
  - Dizziness [Recovering/Resolving]
  - Lymphopenia [Unknown]
  - Contusion [Recovered/Resolved]
  - Back pain [Recovered/Resolved]
  - Bone pain [Not Recovered/Not Resolved]
